FAERS Safety Report 5086470-7 (Version None)
Quarter: 2006Q3

REPORT INFORMATION
  Report Type: 
  Country: None (occurrence: None)
  Receive Date: 20060703
  Receipt Date: 20051206
  Transmission Date: 20061208
  Serious: No
  Sender: FDA-Public Use
  Company Number: 2005S1011801

PATIENT
  Age: 55 Year
  Sex: Male

DRUGS (15)
  1. CLOZAPINE [Suspect]
     Indication: DELUSION
     Dosage: SEE IMAGE
     Route: 048
     Dates: start: 20040901
  2. CLOZAPINE [Suspect]
     Indication: PSYCHOTIC DISORDER
     Dosage: SEE IMAGE
     Route: 048
     Dates: start: 20040901
  3. CLOZAPINE [Suspect]
     Indication: DELUSION
     Dosage: SEE IMAGE
     Route: 048
     Dates: start: 20040901
  4. CLOZAPINE [Suspect]
     Indication: PSYCHOTIC DISORDER
     Dosage: SEE IMAGE
     Route: 048
     Dates: start: 20040901
  5. OMEPRAZOLE [Concomitant]
  6. CARBIDOPA AND LEVODOPA [Concomitant]
  7. MEDROXYPROGESTERONE ACETATE [Concomitant]
  8. VALPROATE SODIUM [Concomitant]
  9. GLYCERYL TRINITRATE [Concomitant]
  10. TAMSULOSIN HYDROCHLORIDE [Concomitant]
  11. BENZTROPEINE [Concomitant]
  12. METOPROLOL [Concomitant]
  13. ASPIRIN [Concomitant]
  14. FOLIC ACID [Concomitant]
  15. LISINOPRIL [Concomitant]

REACTIONS (1)
  - GRANULOCYTOPENIA [None]
